FAERS Safety Report 15669348 (Version 1)
Quarter: 2018Q4

REPORT INFORMATION
  Report Type: Report from Study
  Country: CZ (occurrence: CZ)
  Receive Date: 20181129
  Receipt Date: 20181129
  Transmission Date: 20190205
  Serious: Yes (Other)
  Sender: FDA-Public Use
  Company Number: CZ-ACCORD-094088

PATIENT
  Age: 60 Year

DRUGS (1)
  1. METHOTREXATE. [Suspect]
     Active Substance: METHOTREXATE
     Indication: RETINAL NEOPLASM
     Dosage: ALSO RECEIVED OPTHALMIC METHOTREXATE
     Route: 037

REACTIONS (2)
  - Off label use [Unknown]
  - Toxicity to various agents [Unknown]
